FAERS Safety Report 5959459-0 (Version None)
Quarter: 2008Q4

REPORT INFORMATION
  Report Type: 
  Country: None (occurrence: None)
  Receive Date: 20081117
  Receipt Date: 20081105
  Transmission Date: 20090506
  Serious: Yes (Death, Other)
  Sender: FDA-Public Use
  Company Number: GXKR2008NL10611

PATIENT
  Age: 27 Day
  Weight: 1.1 kg

DRUGS (1)
  1. DEXAMETHASONE [Suspect]
     Indication: BRONCHOPULMONARY DYSPLASIA
     Dosage: .225 MG/KG, QD

REACTIONS (4)
  - BLOOD CORTISOL DECREASED [None]
  - BLOOD PRESSURE INCREASED [None]
  - THYROID FUNCTION TEST ABNORMAL [None]
  - TRI-IODOTHYRONINE DECREASED [None]
